FAERS Safety Report 24407589 (Version 2)
Quarter: 2024Q4

REPORT INFORMATION
  Report Type: Report from Study
  Country: CA (occurrence: CA)
  Receive Date: 20241007
  Receipt Date: 20241202
  Transmission Date: 20250115
  Serious: Yes (Life-Threatening, Other)
  Sender: PFIZER
  Company Number: CA-BRISTOL-MYERS SQUIBB COMPANY-BMS-2020-042391

PATIENT
  Age: 66 Year
  Sex: Male
  Weight: 70 kg

DRUGS (574)
  1. PREVNAR 13 [Suspect]
     Active Substance: STREPTOCOCCUS PNEUMONIAE TYPE 1 CAPSULAR POLYSACCHARIDE DIPHTHERIA CRM197 PROTEIN CONJUGATE ANTIGEN\
     Indication: Immunisation
     Dosage: DOSE NUMBER UNKNOWN, 0.5 ML SINGLE
     Route: 030
  2. PREVNAR 13 [Suspect]
     Active Substance: STREPTOCOCCUS PNEUMONIAE TYPE 1 CAPSULAR POLYSACCHARIDE DIPHTHERIA CRM197 PROTEIN CONJUGATE ANTIGEN\
     Dosage: DOSE NUMBER UNKNOWN, 0.5 ML SINGLE
     Route: 030
  3. PREVNAR 13 [Suspect]
     Active Substance: STREPTOCOCCUS PNEUMONIAE TYPE 1 CAPSULAR POLYSACCHARIDE DIPHTHERIA CRM197 PROTEIN CONJUGATE ANTIGEN\
     Dosage: DOSE NUMBER UNKNOWN, 0.5 ML SINGLE
     Route: 030
  4. PREVNAR 13 [Suspect]
     Active Substance: STREPTOCOCCUS PNEUMONIAE TYPE 1 CAPSULAR POLYSACCHARIDE DIPHTHERIA CRM197 PROTEIN CONJUGATE ANTIGEN\
     Dosage: DOSE NUMBER UNKNOWN, 0.5 ML SINGLE
     Route: 030
  5. PREVNAR 13 [Suspect]
     Active Substance: STREPTOCOCCUS PNEUMONIAE TYPE 1 CAPSULAR POLYSACCHARIDE DIPHTHERIA CRM197 PROTEIN CONJUGATE ANTIGEN\
     Dosage: DOSE NUMBER UNKNOWN, 0.5 ML SINGLE
     Route: 030
  6. PREVNAR 13 [Suspect]
     Active Substance: STREPTOCOCCUS PNEUMONIAE TYPE 1 CAPSULAR POLYSACCHARIDE DIPHTHERIA CRM197 PROTEIN CONJUGATE ANTIGEN\
     Dosage: DOSE NUMBER UNKNOWN, 0.5 ML SINGLE
     Route: 030
  7. PREVNAR 13 [Suspect]
     Active Substance: STREPTOCOCCUS PNEUMONIAE TYPE 1 CAPSULAR POLYSACCHARIDE DIPHTHERIA CRM197 PROTEIN CONJUGATE ANTIGEN\
     Dosage: DOSE NUMBER UNKNOWN, 0.5 ML SINGLE
     Route: 030
  8. PREVNAR 13 [Suspect]
     Active Substance: STREPTOCOCCUS PNEUMONIAE TYPE 1 CAPSULAR POLYSACCHARIDE DIPHTHERIA CRM197 PROTEIN CONJUGATE ANTIGEN\
     Dosage: DOSE NUMBER UNKNOWN, 0.5 ML SINGLE
     Route: 065
  9. PREVNAR 13 [Suspect]
     Active Substance: STREPTOCOCCUS PNEUMONIAE TYPE 1 CAPSULAR POLYSACCHARIDE DIPHTHERIA CRM197 PROTEIN CONJUGATE ANTIGEN\
     Dosage: DOSE NUMBER UNKNOWN, 0.5 ML SINGLE
     Route: 030
  10. PREVNAR 13 [Suspect]
     Active Substance: STREPTOCOCCUS PNEUMONIAE TYPE 1 CAPSULAR POLYSACCHARIDE DIPHTHERIA CRM197 PROTEIN CONJUGATE ANTIGEN\
     Dosage: DOSE NUMBER UNKNOWN, 0.5 ML SINGLE
     Route: 030
  11. PREVNAR 13 [Suspect]
     Active Substance: STREPTOCOCCUS PNEUMONIAE TYPE 1 CAPSULAR POLYSACCHARIDE DIPHTHERIA CRM197 PROTEIN CONJUGATE ANTIGEN\
     Dosage: DOSE NUMBER UNKNOWN, 0.5 ML SINGLE
     Route: 030
  12. PREVNAR 13 [Suspect]
     Active Substance: STREPTOCOCCUS PNEUMONIAE TYPE 1 CAPSULAR POLYSACCHARIDE DIPHTHERIA CRM197 PROTEIN CONJUGATE ANTIGEN\
     Dosage: DOSE NUMBER UNKNOWN, 0.5 ML SINGLE
     Route: 030
  13. PREVNAR 13 [Suspect]
     Active Substance: STREPTOCOCCUS PNEUMONIAE TYPE 1 CAPSULAR POLYSACCHARIDE DIPHTHERIA CRM197 PROTEIN CONJUGATE ANTIGEN\
     Dosage: DOSE NUMBER UNKNOWN, 0.5 ML SINGLE
     Route: 030
  14. PREVNAR 13 [Suspect]
     Active Substance: STREPTOCOCCUS PNEUMONIAE TYPE 1 CAPSULAR POLYSACCHARIDE DIPHTHERIA CRM197 PROTEIN CONJUGATE ANTIGEN\
     Dosage: DOSE NUMBER UNKNOWN, SINGLE
     Route: 030
  15. PREVNAR 13 [Suspect]
     Active Substance: STREPTOCOCCUS PNEUMONIAE TYPE 1 CAPSULAR POLYSACCHARIDE DIPHTHERIA CRM197 PROTEIN CONJUGATE ANTIGEN\
     Dosage: DOSE NUMBER UNKNOWN, SINGLE
     Route: 030
  16. PREVNAR 13 [Suspect]
     Active Substance: STREPTOCOCCUS PNEUMONIAE TYPE 1 CAPSULAR POLYSACCHARIDE DIPHTHERIA CRM197 PROTEIN CONJUGATE ANTIGEN\
     Dosage: DOSE NUMBER UNKNOWN, SINGLE
     Route: 030
  17. PREVNAR 13 [Suspect]
     Active Substance: STREPTOCOCCUS PNEUMONIAE TYPE 1 CAPSULAR POLYSACCHARIDE DIPHTHERIA CRM197 PROTEIN CONJUGATE ANTIGEN\
     Dosage: DOSE NUMBER UNKNOWN, SINGLE
     Route: 030
  18. PREVNAR 13 [Suspect]
     Active Substance: STREPTOCOCCUS PNEUMONIAE TYPE 1 CAPSULAR POLYSACCHARIDE DIPHTHERIA CRM197 PROTEIN CONJUGATE ANTIGEN\
     Dosage: DOSE NUMBER UNKNOWN, SINGLE
     Route: 030
  19. PREVNAR 13 [Suspect]
     Active Substance: STREPTOCOCCUS PNEUMONIAE TYPE 1 CAPSULAR POLYSACCHARIDE DIPHTHERIA CRM197 PROTEIN CONJUGATE ANTIGEN\
     Dosage: DOSE NUMBER UNKNOWN, SINGLE
     Route: 030
  20. PREVNAR 13 [Suspect]
     Active Substance: STREPTOCOCCUS PNEUMONIAE TYPE 1 CAPSULAR POLYSACCHARIDE DIPHTHERIA CRM197 PROTEIN CONJUGATE ANTIGEN\
     Dosage: DOSE NUMBER UNKNOWN, SINGLE
     Route: 030
  21. PREVNAR 13 [Suspect]
     Active Substance: STREPTOCOCCUS PNEUMONIAE TYPE 1 CAPSULAR POLYSACCHARIDE DIPHTHERIA CRM197 PROTEIN CONJUGATE ANTIGEN\
     Dosage: DOSE NUMBER UNKNOWN, SINGLE
     Route: 030
  22. PREVNAR 13 [Suspect]
     Active Substance: STREPTOCOCCUS PNEUMONIAE TYPE 1 CAPSULAR POLYSACCHARIDE DIPHTHERIA CRM197 PROTEIN CONJUGATE ANTIGEN\
     Dosage: DOSE NUMBER UNKNOWN, SINGLE
     Route: 030
  23. PREVNAR 13 [Suspect]
     Active Substance: STREPTOCOCCUS PNEUMONIAE TYPE 1 CAPSULAR POLYSACCHARIDE DIPHTHERIA CRM197 PROTEIN CONJUGATE ANTIGEN\
     Dosage: DOSE NUMBER UNKNOWN, SINGLE
     Route: 030
  24. PREVNAR 13 [Suspect]
     Active Substance: STREPTOCOCCUS PNEUMONIAE TYPE 1 CAPSULAR POLYSACCHARIDE DIPHTHERIA CRM197 PROTEIN CONJUGATE ANTIGEN\
     Dosage: DOSE NUMBER UNKNOWN, SINGLE
     Route: 030
  25. PREVNAR 13 [Suspect]
     Active Substance: STREPTOCOCCUS PNEUMONIAE TYPE 1 CAPSULAR POLYSACCHARIDE DIPHTHERIA CRM197 PROTEIN CONJUGATE ANTIGEN\
     Dosage: DOSE NUMBER UNKNOWN, SINGLE
     Route: 030
  26. PREVNAR 13 [Suspect]
     Active Substance: STREPTOCOCCUS PNEUMONIAE TYPE 1 CAPSULAR POLYSACCHARIDE DIPHTHERIA CRM197 PROTEIN CONJUGATE ANTIGEN\
     Dosage: DOSE NUMBER UNKNOWN, SINGLE
     Route: 030
  27. PREVNAR 13 [Suspect]
     Active Substance: STREPTOCOCCUS PNEUMONIAE TYPE 1 CAPSULAR POLYSACCHARIDE DIPHTHERIA CRM197 PROTEIN CONJUGATE ANTIGEN\
     Dosage: DOSE NUMBER UNKNOWN, SINGLE
     Route: 030
  28. PREVNAR 13 [Suspect]
     Active Substance: STREPTOCOCCUS PNEUMONIAE TYPE 1 CAPSULAR POLYSACCHARIDE DIPHTHERIA CRM197 PROTEIN CONJUGATE ANTIGEN\
     Dosage: DOSE NUMBER UNKNOWN, SINGLE (REPORTED AS 0.5 DF)
     Route: 030
  29. PREVNAR 13 [Suspect]
     Active Substance: STREPTOCOCCUS PNEUMONIAE TYPE 1 CAPSULAR POLYSACCHARIDE DIPHTHERIA CRM197 PROTEIN CONJUGATE ANTIGEN\
     Dosage: DOSE NUMBER UNKNOWN, SINGLE (REPORTED AS 0.5 DF)
     Route: 030
  30. PREVNAR 13 [Suspect]
     Active Substance: STREPTOCOCCUS PNEUMONIAE TYPE 1 CAPSULAR POLYSACCHARIDE DIPHTHERIA CRM197 PROTEIN CONJUGATE ANTIGEN\
     Dosage: DOSE NUMBER UNKNOWN, 0.5 ML SINGLE
     Route: 030
  31. PREVNAR 13 [Suspect]
     Active Substance: STREPTOCOCCUS PNEUMONIAE TYPE 1 CAPSULAR POLYSACCHARIDE DIPHTHERIA CRM197 PROTEIN CONJUGATE ANTIGEN\
     Dosage: DOSE NUMBER UNKNOWN, 0.5 ML SINGLE
     Route: 030
  32. PREVNAR 13 [Suspect]
     Active Substance: STREPTOCOCCUS PNEUMONIAE TYPE 1 CAPSULAR POLYSACCHARIDE DIPHTHERIA CRM197 PROTEIN CONJUGATE ANTIGEN\
     Dosage: DOSE NUMBER UNKNOWN, 0.5 ML SINGLE
     Route: 030
  33. PREVNAR 13 [Suspect]
     Active Substance: STREPTOCOCCUS PNEUMONIAE TYPE 1 CAPSULAR POLYSACCHARIDE DIPHTHERIA CRM197 PROTEIN CONJUGATE ANTIGEN\
     Dosage: DOSE NUMBER UNKNOWN, 0.5 ML SINGLE
     Route: 030
  34. PREVNAR 13 [Suspect]
     Active Substance: STREPTOCOCCUS PNEUMONIAE TYPE 1 CAPSULAR POLYSACCHARIDE DIPHTHERIA CRM197 PROTEIN CONJUGATE ANTIGEN\
     Dosage: DOSE NUMBER UNKNOWN, 0.5 ML SINGLE
     Route: 030
  35. PREVNAR 13 [Suspect]
     Active Substance: STREPTOCOCCUS PNEUMONIAE TYPE 1 CAPSULAR POLYSACCHARIDE DIPHTHERIA CRM197 PROTEIN CONJUGATE ANTIGEN\
     Dosage: DOSE NUMBER UNKNOWN, 0.5 ML SINGLE
     Route: 030
  36. PREVNAR 13 [Suspect]
     Active Substance: STREPTOCOCCUS PNEUMONIAE TYPE 1 CAPSULAR POLYSACCHARIDE DIPHTHERIA CRM197 PROTEIN CONJUGATE ANTIGEN\
     Dosage: DOSE NUMBER UNKNOWN, 0.5 ML SINGLE
     Route: 030
  37. PREVNAR 13 [Suspect]
     Active Substance: STREPTOCOCCUS PNEUMONIAE TYPE 1 CAPSULAR POLYSACCHARIDE DIPHTHERIA CRM197 PROTEIN CONJUGATE ANTIGEN\
     Dosage: DOSE NUMBER UNKNOWN, 0.5 ML SINGLE
     Route: 030
  38. PREVNAR 13 [Suspect]
     Active Substance: STREPTOCOCCUS PNEUMONIAE TYPE 1 CAPSULAR POLYSACCHARIDE DIPHTHERIA CRM197 PROTEIN CONJUGATE ANTIGEN\
     Dosage: DOSE NUMBER UNKNOWN, 0.5 ML SINGLE
     Route: 030
  39. PREVNAR 13 [Suspect]
     Active Substance: STREPTOCOCCUS PNEUMONIAE TYPE 1 CAPSULAR POLYSACCHARIDE DIPHTHERIA CRM197 PROTEIN CONJUGATE ANTIGEN\
     Dosage: DOSE NUMBER UNKNOWN, 0.5 ML SINGLE
     Route: 030
  40. PNEUMOCOCCAL 13-VALENT CONJUGATE VACCINE [Suspect]
     Active Substance: PNEUMOCOCCAL 13-VALENT CONJUGATE VACCINE
     Indication: Immunisation
     Dosage: DOSE NUMBER UNKNOWN, 0.5 ML SINGLE
     Route: 030
  41. PNEUMOCOCCAL 13-VALENT CONJUGATE VACCINE [Suspect]
     Active Substance: PNEUMOCOCCAL 13-VALENT CONJUGATE VACCINE
     Dosage: DOSE NUMBER UNKNOWN, SINGLE
     Route: 030
  42. ELIQUIS [Suspect]
     Active Substance: APIXABAN
     Dosage: 1.0 DOSAGE FORMS; 2 EVERY 1 DAYS
     Route: 065
  43. ELIQUIS [Suspect]
     Active Substance: APIXABAN
     Dosage: 1.0 DOSAGE FORMS
     Route: 065
  44. ELIQUIS [Suspect]
     Active Substance: APIXABAN
     Dosage: 1.0 DOSAGE FORMS
     Route: 065
  45. ELIQUIS [Suspect]
     Active Substance: APIXABAN
     Dosage: 1 DF, 1X/DAY (1 EVERY 1 DAYS)
     Route: 065
  46. ELIQUIS [Suspect]
     Active Substance: APIXABAN
     Dosage: 1 DF
     Route: 065
  47. ELIQUIS [Suspect]
     Active Substance: APIXABAN
     Dosage: 1.0 DOSAGE FORMS
     Route: 065
  48. ELIQUIS [Suspect]
     Active Substance: APIXABAN
     Dosage: 1.0 DOSAGE FORMS, 2X/DAY
     Route: 065
  49. ELIQUIS [Suspect]
     Active Substance: APIXABAN
     Dosage: 1 DF
     Route: 065
  50. ELIQUIS [Suspect]
     Active Substance: APIXABAN
     Dosage: 1.0 DOSAGE FORMS, 2X/DAY
  51. ELIQUIS [Suspect]
     Active Substance: APIXABAN
     Dosage: 1.0 DOSAGE FORMS, 2X/DAY
  52. ELIQUIS [Suspect]
     Active Substance: APIXABAN
     Dosage: UNK
     Route: 065
  53. EPINEPHRINE [Suspect]
     Active Substance: EPINEPHRINE
     Indication: Anaphylactic reaction
     Dosage: UNK
     Route: 065
  54. EPINEPHRINE [Suspect]
     Active Substance: EPINEPHRINE
     Dosage: UNK
     Route: 065
  55. EPINEPHRINE [Suspect]
     Active Substance: EPINEPHRINE
     Dosage: UNK
     Route: 065
  56. EPINEPHRINE [Suspect]
     Active Substance: EPINEPHRINE
     Dosage: DOSAGE FORM: NOT SPECIFIED
     Route: 065
  57. EPINEPHRINE [Suspect]
     Active Substance: EPINEPHRINE
     Dosage: UNK
     Route: 065
  58. EPINEPHRINE [Suspect]
     Active Substance: EPINEPHRINE
     Dosage: UNK
     Route: 065
  59. EPINEPHRINE [Suspect]
     Active Substance: EPINEPHRINE
     Dosage: UNK
     Route: 065
  60. EPINEPHRINE [Suspect]
     Active Substance: EPINEPHRINE
     Dosage: UNK
     Route: 065
  61. EPINEPHRINE [Suspect]
     Active Substance: EPINEPHRINE
     Dosage: UNK
     Route: 065
  62. EPINEPHRINE [Suspect]
     Active Substance: EPINEPHRINE
     Dosage: UNK
     Route: 065
  63. EPINEPHRINE [Suspect]
     Active Substance: EPINEPHRINE
     Dosage: UNK
     Route: 065
  64. EPINEPHRINE [Suspect]
     Active Substance: EPINEPHRINE
     Dosage: UNK
     Route: 065
  65. EPINEPHRINE [Suspect]
     Active Substance: EPINEPHRINE
     Dosage: UNK
     Route: 065
  66. ANORO ELLIPTA [Suspect]
     Active Substance: UMECLIDINIUM BROMIDE\VILANTEROL TRIFENATATE
     Dosage: 1.0 DOSAGE FORMS, 1 EVERY 1 DAY
     Route: 055
  67. ANORO ELLIPTA [Suspect]
     Active Substance: UMECLIDINIUM BROMIDE\VILANTEROL TRIFENATATE
     Dosage: UNK
     Route: 055
  68. ANORO ELLIPTA [Suspect]
     Active Substance: UMECLIDINIUM BROMIDE\VILANTEROL TRIFENATATE
     Dosage: UNK
     Route: 055
  69. APIXABAN [Suspect]
     Active Substance: APIXABAN
     Dosage: 1.0 DOSAGE FORMS
     Route: 065
  70. APIXABAN [Suspect]
     Active Substance: APIXABAN
     Dosage: 1.0 DOSAGE FORMS
     Route: 065
  71. APIXABAN [Suspect]
     Active Substance: APIXABAN
     Dosage: 1.0 DOSAGE FORMS
     Route: 065
  72. APIXABAN [Suspect]
     Active Substance: APIXABAN
     Dosage: 1.0 DOSAGE FORMS
     Route: 065
  73. APIXABAN [Suspect]
     Active Substance: APIXABAN
     Dosage: 1.0 DOSAGE FORMS
     Route: 065
  74. APIXABAN [Suspect]
     Active Substance: APIXABAN
     Dosage: 1.0 DOSAGE FORMS, 2 EVERY 1 DAYS
     Route: 065
  75. APIXABAN [Suspect]
     Active Substance: APIXABAN
     Dosage: 1.0 DOSAGE FORMS, 2 EVERY 1 DAYS
     Route: 065
  76. APIXABAN [Suspect]
     Active Substance: APIXABAN
     Dosage: 1.0 DOSAGE FORMS, 2 EVERY 1 DAYS
     Route: 065
  77. APIXABAN [Suspect]
     Active Substance: APIXABAN
     Dosage: 1.0 DOSAGE FORMS, 1 EVERY 1 DAYS
     Route: 065
  78. APIXABAN [Suspect]
     Active Substance: APIXABAN
     Dosage: UNK
     Route: 065
  79. APIXABAN [Suspect]
     Active Substance: APIXABAN
     Dosage: UNK
     Route: 065
  80. APIXABAN [Suspect]
     Active Substance: APIXABAN
     Dosage: UNK
     Route: 065
  81. BUDESONIDE [Suspect]
     Active Substance: BUDESONIDE
     Dosage: 1.0 DOSAGE FORMS
     Route: 055
  82. BUDESONIDE [Suspect]
     Active Substance: BUDESONIDE
     Dosage: 1 DF, 2X/DAY
     Route: 065
  83. BUDESONIDE [Suspect]
     Active Substance: BUDESONIDE
     Dosage: 2.0 DOSAGE FORMS, 1 EVERY 1 DAYS
     Route: 065
  84. BUDESONIDE [Suspect]
     Active Substance: BUDESONIDE
     Dosage: UNK
     Route: 055
  85. BUDESONIDE [Suspect]
     Active Substance: BUDESONIDE
     Dosage: UNK
     Route: 055
  86. BUDESONIDE [Suspect]
     Active Substance: BUDESONIDE
     Dosage: UNK
     Route: 055
  87. BUDESONIDE [Suspect]
     Active Substance: BUDESONIDE
     Dosage: 2 EVERY 1 DAYS
     Route: 055
  88. BUDESONIDE [Suspect]
     Active Substance: BUDESONIDE
     Dosage: UNK
     Route: 065
  89. BUDESONIDE [Suspect]
     Active Substance: BUDESONIDE
     Dosage: 2 EVERY 1 DAYS
     Route: 065
  90. BUDESONIDE [Suspect]
     Active Substance: BUDESONIDE
     Dosage: 2 EVERY 1 DAYS
     Route: 055
  91. BUDESONIDE [Suspect]
     Active Substance: BUDESONIDE
     Dosage: 1 DF, 2X/DAY
     Route: 065
  92. BUDESONIDE [Suspect]
     Active Substance: BUDESONIDE
     Dosage: 1 EVERY 1 DAYS
     Route: 065
  93. BUDESONIDE [Suspect]
     Active Substance: BUDESONIDE
     Dosage: 2.0 DOSAGE FORMS, 1 EVERY 1 DAYS
     Route: 065
  94. BUDESONIDE [Suspect]
     Active Substance: BUDESONIDE
     Dosage: 1 DF, 2X/DAY
     Route: 065
  95. BUDESONIDE [Suspect]
     Active Substance: BUDESONIDE
     Dosage: 1 DF
     Route: 065
  96. BUDESONIDE [Suspect]
     Active Substance: BUDESONIDE
     Dosage: 1 DF
     Route: 065
  97. BUDESONIDE [Suspect]
     Active Substance: BUDESONIDE
     Dosage: 1 DF
     Route: 065
  98. BUDESONIDE [Suspect]
     Active Substance: BUDESONIDE
     Dosage: 1 DF
     Route: 065
  99. BUDESONIDE [Suspect]
     Active Substance: BUDESONIDE
     Dosage: 1 DF
     Route: 055
  100. BUDESONIDE [Suspect]
     Active Substance: BUDESONIDE
     Dosage: UNK
     Route: 065
  101. BUDESONIDE [Suspect]
     Active Substance: BUDESONIDE
     Dosage: UNK
     Route: 065
  102. BUDESONIDE [Suspect]
     Active Substance: BUDESONIDE
     Dosage: UNK
     Route: 065
  103. BUDESONIDE [Suspect]
     Active Substance: BUDESONIDE
     Dosage: UNK
     Route: 065
  104. BUDESONIDE [Suspect]
     Active Substance: BUDESONIDE
     Dosage: UNK
     Route: 055
  105. BUDESONIDE [Suspect]
     Active Substance: BUDESONIDE
     Dosage: UNK
     Route: 065
  106. BUDESONIDE [Suspect]
     Active Substance: BUDESONIDE
     Dosage: UNK
     Route: 065
  107. BUDESONIDE [Suspect]
     Active Substance: BUDESONIDE
     Dosage: UNK
     Route: 065
  108. BUDESONIDE [Suspect]
     Active Substance: BUDESONIDE
     Dosage: UNK
     Route: 065
  109. BUDESONIDE [Suspect]
     Active Substance: BUDESONIDE
     Dosage: UNK
     Route: 055
  110. BUDESONIDE [Suspect]
     Active Substance: BUDESONIDE
     Dosage: UNK
     Route: 065
  111. BUDESONIDE [Suspect]
     Active Substance: BUDESONIDE
     Dosage: UNK
     Route: 065
  112. BUDESONIDE [Suspect]
     Active Substance: BUDESONIDE
     Dosage: UNK
     Route: 065
  113. BUDESONIDE [Suspect]
     Active Substance: BUDESONIDE
     Dosage: UNK
     Route: 065
  114. BUDESONIDE [Suspect]
     Active Substance: BUDESONIDE
     Dosage: UNK
     Route: 065
  115. BUDESONIDE [Suspect]
     Active Substance: BUDESONIDE
     Dosage: UNK
     Route: 065
  116. BUDESONIDE [Suspect]
     Active Substance: BUDESONIDE
     Dosage: UNK
     Route: 065
  117. BUDESONIDE [Suspect]
     Active Substance: BUDESONIDE
     Dosage: UNK
     Route: 065
  118. BUDESONIDE [Suspect]
     Active Substance: BUDESONIDE
     Dosage: UNK
     Route: 065
  119. BUDESONIDE [Suspect]
     Active Substance: BUDESONIDE
     Dosage: UNK
     Route: 065
  120. BUDESONIDE [Suspect]
     Active Substance: BUDESONIDE
     Dosage: UNK
     Route: 065
  121. BUDESONIDE [Suspect]
     Active Substance: BUDESONIDE
     Dosage: UNK
     Route: 065
  122. BUDESONIDE [Suspect]
     Active Substance: BUDESONIDE
     Dosage: UNK
     Route: 065
  123. BUDESONIDE [Suspect]
     Active Substance: BUDESONIDE
     Dosage: UNK
     Route: 065
  124. BUDESONIDE [Suspect]
     Active Substance: BUDESONIDE
     Dosage: UNK
     Route: 065
  125. BUDESONIDE [Suspect]
     Active Substance: BUDESONIDE
     Dosage: UNK
     Route: 065
  126. BUDESONIDE [Suspect]
     Active Substance: BUDESONIDE
     Dosage: UNK
     Route: 055
  127. BUDESONIDE [Suspect]
     Active Substance: BUDESONIDE
     Dosage: UNK
     Route: 055
  128. BUDESONIDE [Suspect]
     Active Substance: BUDESONIDE
     Dosage: UNK
     Route: 055
  129. BUDESONIDE [Suspect]
     Active Substance: BUDESONIDE
     Dosage: UNK
     Route: 055
  130. BUDESONIDE [Suspect]
     Active Substance: BUDESONIDE
     Dosage: UNK
     Route: 065
  131. EPINEPHRINE BITARTRATE [Suspect]
     Active Substance: EPINEPHRINE BITARTRATE
     Indication: Anaphylactic reaction
     Dosage: UNK
     Route: 065
  132. EPINEPHRINE HYDROCHLORIDE [Suspect]
     Active Substance: EPINEPHRINE HYDROCHLORIDE
     Indication: Anaphylactic reaction
     Dosage: UNK
     Route: 065
  133. EPINEPHRINE HYDROCHLORIDE [Suspect]
     Active Substance: EPINEPHRINE HYDROCHLORIDE
     Dosage: UNK
     Route: 065
  134. EPINEPHRINE HYDROCHLORIDE [Suspect]
     Active Substance: EPINEPHRINE HYDROCHLORIDE
     Dosage: UNK
     Route: 065
  135. EPINEPHRINE HYDROCHLORIDE [Suspect]
     Active Substance: EPINEPHRINE HYDROCHLORIDE
     Dosage: UNK
     Route: 065
  136. EPINEPHRINE HYDROCHLORIDE [Suspect]
     Active Substance: EPINEPHRINE HYDROCHLORIDE
     Dosage: UNK
     Route: 065
  137. EPINEPHRINE HYDROCHLORIDE [Suspect]
     Active Substance: EPINEPHRINE HYDROCHLORIDE
     Dosage: UNK
     Route: 065
  138. EPINEPHRINE HYDROCHLORIDE [Suspect]
     Active Substance: EPINEPHRINE HYDROCHLORIDE
     Dosage: UNK
     Route: 065
  139. EPINEPHRINE HYDROCHLORIDE [Suspect]
     Active Substance: EPINEPHRINE HYDROCHLORIDE
     Dosage: UNK
     Route: 065
  140. EPINEPHRINE HYDROCHLORIDE [Suspect]
     Active Substance: EPINEPHRINE HYDROCHLORIDE
     Dosage: UNK
     Route: 065
  141. EPINEPHRINE HYDROCHLORIDE [Suspect]
     Active Substance: EPINEPHRINE HYDROCHLORIDE
     Dosage: UNK
     Route: 065
  142. EPINEPHRINE HYDROCHLORIDE [Suspect]
     Active Substance: EPINEPHRINE HYDROCHLORIDE
     Dosage: UNK
     Route: 065
  143. EPINEPHRINE HYDROCHLORIDE [Suspect]
     Active Substance: EPINEPHRINE HYDROCHLORIDE
     Dosage: UNK
     Route: 065
  144. EPINEPHRINE HYDROCHLORIDE [Suspect]
     Active Substance: EPINEPHRINE HYDROCHLORIDE
     Dosage: UNK
     Route: 065
  145. EPINEPHRINE HYDROCHLORIDE [Suspect]
     Active Substance: EPINEPHRINE HYDROCHLORIDE
     Dosage: UNK
     Route: 065
  146. EPINEPHRINE HYDROCHLORIDE [Suspect]
     Active Substance: EPINEPHRINE HYDROCHLORIDE
     Dosage: UNK
     Route: 065
  147. EPINEPHRINE HYDROCHLORIDE [Suspect]
     Active Substance: EPINEPHRINE HYDROCHLORIDE
     Dosage: UNK
     Route: 065
  148. EPINEPHRINE HYDROCHLORIDE [Suspect]
     Active Substance: EPINEPHRINE HYDROCHLORIDE
     Dosage: UNK
     Route: 065
  149. EPINEPHRINE HYDROCHLORIDE [Suspect]
     Active Substance: EPINEPHRINE HYDROCHLORIDE
     Dosage: UNK
     Route: 065
  150. EPINEPHRINE HYDROCHLORIDE [Suspect]
     Active Substance: EPINEPHRINE HYDROCHLORIDE
     Dosage: UNK
     Route: 065
  151. EPINEPHRINE HYDROCHLORIDE [Suspect]
     Active Substance: EPINEPHRINE HYDROCHLORIDE
     Dosage: UNK
     Route: 065
  152. EPINEPHRINE HYDROCHLORIDE [Suspect]
     Active Substance: EPINEPHRINE HYDROCHLORIDE
     Dosage: UNK
     Route: 065
  153. EPINEPHRINE HYDROCHLORIDE [Suspect]
     Active Substance: EPINEPHRINE HYDROCHLORIDE
     Dosage: UNK
     Route: 065
  154. EPINEPHRINE HYDROCHLORIDE [Suspect]
     Active Substance: EPINEPHRINE HYDROCHLORIDE
     Dosage: UNK
     Route: 065
  155. EPINEPHRINE HYDROCHLORIDE [Suspect]
     Active Substance: EPINEPHRINE HYDROCHLORIDE
     Dosage: UNK
     Route: 065
  156. EPINEPHRINE HYDROCHLORIDE [Suspect]
     Active Substance: EPINEPHRINE HYDROCHLORIDE
     Dosage: UNK
     Route: 065
  157. EPINEPHRINE BITARTRATE [Suspect]
     Active Substance: EPINEPHRINE BITARTRATE
     Indication: Anaphylactic reaction
     Dosage: 100 MG
     Route: 058
  158. EPINEPHRINE BITARTRATE [Suspect]
     Active Substance: EPINEPHRINE BITARTRATE
     Dosage: UNK
     Route: 065
  159. EPINEPHRINE BITARTRATE [Suspect]
     Active Substance: EPINEPHRINE BITARTRATE
     Dosage: UNK
     Route: 065
  160. EPINEPHRINE BITARTRATE [Suspect]
     Active Substance: EPINEPHRINE BITARTRATE
     Dosage: UNK
     Route: 065
  161. EPINEPHRINE BITARTRATE [Suspect]
     Active Substance: EPINEPHRINE BITARTRATE
     Dosage: UNK
     Route: 065
  162. EPINEPHRINE BITARTRATE [Suspect]
     Active Substance: EPINEPHRINE BITARTRATE
     Dosage: UNK
     Route: 065
  163. EPINEPHRINE BITARTRATE [Suspect]
     Active Substance: EPINEPHRINE BITARTRATE
     Dosage: UNK
     Route: 065
  164. EPINEPHRINE BITARTRATE [Suspect]
     Active Substance: EPINEPHRINE BITARTRATE
     Dosage: UNK
     Route: 065
  165. EPINEPHRINE BITARTRATE [Suspect]
     Active Substance: EPINEPHRINE BITARTRATE
     Dosage: UNK
     Route: 065
  166. EPINEPHRINE BITARTRATE [Suspect]
     Active Substance: EPINEPHRINE BITARTRATE
     Dosage: UNK
     Route: 065
  167. EPINEPHRINE BITARTRATE [Suspect]
     Active Substance: EPINEPHRINE BITARTRATE
     Dosage: UNK
     Route: 065
  168. EPINEPHRINE BITARTRATE [Suspect]
     Active Substance: EPINEPHRINE BITARTRATE
     Dosage: UNK
     Route: 065
  169. EPINEPHRINE BITARTRATE [Suspect]
     Active Substance: EPINEPHRINE BITARTRATE
     Dosage: UNK
     Route: 065
  170. EPINEPHRINE BITARTRATE [Suspect]
     Active Substance: EPINEPHRINE BITARTRATE
     Dosage: UNK
     Route: 065
  171. EPINEPHRINE BITARTRATE [Suspect]
     Active Substance: EPINEPHRINE BITARTRATE
     Dosage: UNK
     Route: 065
  172. EPINEPHRINE BITARTRATE [Suspect]
     Active Substance: EPINEPHRINE BITARTRATE
     Dosage: UNK
     Route: 065
  173. EPINEPHRINE BITARTRATE [Suspect]
     Active Substance: EPINEPHRINE BITARTRATE
     Dosage: UNK
     Route: 065
  174. EPINEPHRINE BITARTRATE [Suspect]
     Active Substance: EPINEPHRINE BITARTRATE
     Dosage: UNK
     Route: 065
  175. EPINEPHRINE BITARTRATE [Suspect]
     Active Substance: EPINEPHRINE BITARTRATE
     Dosage: UNK
     Route: 065
  176. EPINEPHRINE BITARTRATE [Suspect]
     Active Substance: EPINEPHRINE BITARTRATE
     Dosage: UNK
     Route: 065
  177. EPINEPHRINE BITARTRATE [Suspect]
     Active Substance: EPINEPHRINE BITARTRATE
     Dosage: UNK
     Route: 065
  178. EPINEPHRINE BITARTRATE [Suspect]
     Active Substance: EPINEPHRINE BITARTRATE
     Dosage: UNK
     Route: 065
  179. EPINEPHRINE BITARTRATE [Suspect]
     Active Substance: EPINEPHRINE BITARTRATE
     Dosage: UNK
     Route: 065
  180. EPINEPHRINE BITARTRATE [Suspect]
     Active Substance: EPINEPHRINE BITARTRATE
     Dosage: UNK
     Route: 065
  181. EPINEPHRINE BITARTRATE [Suspect]
     Active Substance: EPINEPHRINE BITARTRATE
     Dosage: UNK
     Route: 065
  182. EPINEPHRINE BITARTRATE [Suspect]
     Active Substance: EPINEPHRINE BITARTRATE
     Dosage: UNK
     Route: 065
  183. EPINEPHRINE BITARTRATE [Suspect]
     Active Substance: EPINEPHRINE BITARTRATE
     Dosage: UNK
     Route: 065
  184. EPINEPHRINE BITARTRATE [Suspect]
     Active Substance: EPINEPHRINE BITARTRATE
     Dosage: UNK
     Route: 065
  185. EPINEPHRINE BITARTRATE [Suspect]
     Active Substance: EPINEPHRINE BITARTRATE
     Dosage: UNK
     Route: 065
  186. EPINEPHRINE BITARTRATE [Suspect]
     Active Substance: EPINEPHRINE BITARTRATE
     Dosage: UNK
     Route: 065
  187. EPINEPHRINE BITARTRATE [Suspect]
     Active Substance: EPINEPHRINE BITARTRATE
     Dosage: UNK
     Route: 065
  188. EPINEPHRINE BITARTRATE [Suspect]
     Active Substance: EPINEPHRINE BITARTRATE
     Dosage: UNK
     Route: 065
  189. EPINEPHRINE BITARTRATE [Suspect]
     Active Substance: EPINEPHRINE BITARTRATE
     Dosage: UNK
     Route: 065
  190. EPINEPHRINE BITARTRATE [Suspect]
     Active Substance: EPINEPHRINE BITARTRATE
     Dosage: UNK
     Route: 065
  191. EPINEPHRINE BITARTRATE [Suspect]
     Active Substance: EPINEPHRINE BITARTRATE
     Dosage: UNK
     Route: 065
  192. LEVALBUTEROL HYDROCHLORIDE [Suspect]
     Active Substance: LEVALBUTEROL HYDROCHLORIDE
     Dosage: 100.0 MILLIGRAM
     Route: 065
  193. LEVALBUTEROL HYDROCHLORIDE [Suspect]
     Active Substance: LEVALBUTEROL HYDROCHLORIDE
     Dosage: 100.0 MILLIGRAM
     Route: 065
  194. LEVALBUTEROL HYDROCHLORIDE [Suspect]
     Active Substance: LEVALBUTEROL HYDROCHLORIDE
     Dosage: UNK
     Route: 065
  195. LEVALBUTEROL HYDROCHLORIDE [Suspect]
     Active Substance: LEVALBUTEROL HYDROCHLORIDE
     Dosage: 100.0 MILLIGRAM
     Route: 065
  196. LEVALBUTEROL HYDROCHLORIDE [Suspect]
     Active Substance: LEVALBUTEROL HYDROCHLORIDE
     Dosage: 100 MILLIGRAM
     Route: 065
  197. LEVALBUTEROL HYDROCHLORIDE [Suspect]
     Active Substance: LEVALBUTEROL HYDROCHLORIDE
     Dosage: 100 MILLIGRAM
     Route: 065
  198. LEVALBUTEROL [Suspect]
     Active Substance: LEVALBUTEROL
     Dosage: 100.0 MICROGRAM
     Route: 065
  199. LEVALBUTEROL [Suspect]
     Active Substance: LEVALBUTEROL
     Dosage: 100.0 MILLIGRAM
     Route: 065
  200. LEVALBUTEROL [Suspect]
     Active Substance: LEVALBUTEROL
     Dosage: 100.0 MILLIGRAM
     Route: 065
  201. LEVALBUTEROL [Suspect]
     Active Substance: LEVALBUTEROL
     Dosage: 100.0 MILLIGRAM
     Route: 065
  202. LEVALBUTEROL [Suspect]
     Active Substance: LEVALBUTEROL
     Dosage: 100.0 MILLIGRAM
     Route: 065
  203. LEVALBUTEROL [Suspect]
     Active Substance: LEVALBUTEROL
     Dosage: 100.0 MILLIGRAM
     Route: 065
  204. LEVALBUTEROL [Suspect]
     Active Substance: LEVALBUTEROL
     Dosage: UNK
     Route: 065
  205. LEVALBUTEROL [Suspect]
     Active Substance: LEVALBUTEROL
     Dosage: UNK
     Route: 065
  206. LEVALBUTEROL [Suspect]
     Active Substance: LEVALBUTEROL
     Dosage: 100.0 MILLIGRAM
     Route: 065
  207. MEPOLIZUMAB [Suspect]
     Active Substance: MEPOLIZUMAB
     Indication: Asthma
     Dosage: 100 MG, MONTHLY
     Route: 058
  208. MEPOLIZUMAB [Suspect]
     Active Substance: MEPOLIZUMAB
     Dosage: 100 MG, MONTHLY
     Route: 058
  209. MEPOLIZUMAB [Suspect]
     Active Substance: MEPOLIZUMAB
     Dosage: 100.0 MILLIGRAM
     Route: 058
  210. MEPOLIZUMAB [Suspect]
     Active Substance: MEPOLIZUMAB
     Dosage: 100.0 MILLIGRAM
     Route: 058
  211. MEPOLIZUMAB [Suspect]
     Active Substance: MEPOLIZUMAB
     Dosage: 100.0 MILLIGRAM
     Route: 058
  212. MEPOLIZUMAB [Suspect]
     Active Substance: MEPOLIZUMAB
     Dosage: 100.0 MILLIGRAM
     Route: 058
  213. MEPOLIZUMAB [Suspect]
     Active Substance: MEPOLIZUMAB
     Dosage: 100.0 MILLIGRAM
     Route: 058
  214. MEPOLIZUMAB [Suspect]
     Active Substance: MEPOLIZUMAB
     Dosage: 100.0 MILLIGRAM
     Route: 058
  215. MEPOLIZUMAB [Suspect]
     Active Substance: MEPOLIZUMAB
     Dosage: 100.0 MILLIGRAM
     Route: 058
  216. MEPOLIZUMAB [Suspect]
     Active Substance: MEPOLIZUMAB
     Dosage: UNK
     Route: 058
  217. NUCALA [Suspect]
     Active Substance: MEPOLIZUMAB
     Indication: Asthma
     Dosage: 100 MG, MONTHLY
     Route: 058
  218. NUCALA [Suspect]
     Active Substance: MEPOLIZUMAB
     Dosage: 100.0 MICROGRAM
     Route: 058
  219. NUCALA [Suspect]
     Active Substance: MEPOLIZUMAB
     Dosage: UNK
     Route: 065
  220. NUCALA [Suspect]
     Active Substance: MEPOLIZUMAB
     Dosage: UNK
     Route: 065
  221. NUCALA [Suspect]
     Active Substance: MEPOLIZUMAB
     Dosage: 100.0 MICROGRAM
     Route: 065
  222. NUCALA [Suspect]
     Active Substance: MEPOLIZUMAB
     Dosage: 100.0 MILLIGRAM, 1 EVERY 4 WEEKS
     Route: 065
  223. NUCALA [Suspect]
     Active Substance: MEPOLIZUMAB
     Dosage: 100.0 MILLIGRAM
     Route: 065
  224. NUCALA [Suspect]
     Active Substance: MEPOLIZUMAB
     Dosage: UNK
     Route: 065
  225. NUCALA [Suspect]
     Active Substance: MEPOLIZUMAB
     Dosage: UNK
     Route: 065
  226. NUCALA [Suspect]
     Active Substance: MEPOLIZUMAB
     Dosage: 100.0 MILLIGRAM
     Route: 058
  227. NUCALA [Suspect]
     Active Substance: MEPOLIZUMAB
     Dosage: 100.0 MILLIGRAM
     Route: 058
  228. NUCALA [Suspect]
     Active Substance: MEPOLIZUMAB
     Dosage: 100.0 MILLIGRAM
     Route: 058
  229. NUCALA [Suspect]
     Active Substance: MEPOLIZUMAB
     Dosage: UNK
     Route: 065
  230. NUCALA [Suspect]
     Active Substance: MEPOLIZUMAB
     Dosage: UNK
     Route: 065
  231. NUCALA [Suspect]
     Active Substance: MEPOLIZUMAB
     Dosage: 100.0 MILLIGRAM
     Route: 058
  232. NUCALA [Suspect]
     Active Substance: MEPOLIZUMAB
     Dosage: 100.0 MILLIGRAM
     Route: 058
  233. NUCALA [Suspect]
     Active Substance: MEPOLIZUMAB
     Dosage: 100.0 MILLIGRAM
     Route: 058
  234. NUCALA [Suspect]
     Active Substance: MEPOLIZUMAB
     Dosage: 100.0 MILLIGRAM
     Route: 058
  235. NUCALA [Suspect]
     Active Substance: MEPOLIZUMAB
     Dosage: UNK
     Route: 065
  236. NUCALA [Suspect]
     Active Substance: MEPOLIZUMAB
     Dosage: UNK
     Route: 065
  237. NUCALA [Suspect]
     Active Substance: MEPOLIZUMAB
     Dosage: 100.0 MILLIGRAM
     Route: 058
  238. NUCALA [Suspect]
     Active Substance: MEPOLIZUMAB
     Dosage: UNK
     Route: 065
  239. NUCALA [Suspect]
     Active Substance: MEPOLIZUMAB
     Dosage: UNK
     Route: 065
  240. NUCALA [Suspect]
     Active Substance: MEPOLIZUMAB
     Dosage: 100.0 MILLIGRAM
     Route: 058
  241. NUCALA [Suspect]
     Active Substance: MEPOLIZUMAB
     Dosage: 35714.0 MILLIGRAM
     Route: 058
  242. NUCALA [Suspect]
     Active Substance: MEPOLIZUMAB
     Dosage: 35714.0 MILLIGRAM
     Route: 058
  243. NUCALA [Suspect]
     Active Substance: MEPOLIZUMAB
     Dosage: UNK
     Route: 048
  244. NUCALA [Suspect]
     Active Substance: MEPOLIZUMAB
     Dosage: 100.0 MILLIGRAM
     Route: 065
  245. NUCALA [Suspect]
     Active Substance: MEPOLIZUMAB
     Dosage: 100.0 MILLIGRAM
     Route: 065
  246. NUCALA [Suspect]
     Active Substance: MEPOLIZUMAB
     Dosage: 100.0 MILLIGRAM
     Route: 065
  247. NUCALA [Suspect]
     Active Substance: MEPOLIZUMAB
     Dosage: 100.0 MILLIGRAM
     Route: 065
  248. NUCALA [Suspect]
     Active Substance: MEPOLIZUMAB
     Dosage: 100.0 MILLIGRAM
     Route: 058
  249. PNEUMOCOCCAL VACCINE POLYVALENT NOS [Suspect]
     Active Substance: PNEUMOCOCCAL VACCINE, POLYVALENT
     Indication: Immunisation
     Dosage: DOSE NUMBER UNKNOWN, SINGLE
     Route: 065
  250. PNEUMOCOCCAL VACCINE POLYVALENT NOS [Suspect]
     Active Substance: PNEUMOCOCCAL VACCINE, POLYVALENT
     Dosage: DOSE NUMBER UNKNOWN, SINGLE
     Route: 030
  251. PNEUMOCOCCAL VACCINE POLYVALENT NOS [Suspect]
     Active Substance: PNEUMOCOCCAL VACCINE, POLYVALENT
     Dosage: DOSE NUMBER UNKNOWN, SINGLE
     Route: 065
  252. PNEUMOCOCCAL VACCINE POLYVALENT NOS [Suspect]
     Active Substance: PNEUMOCOCCAL VACCINE, POLYVALENT
     Dosage: DOSE NUMBER UNKNOWN, SINGLE
     Route: 065
  253. PNEUMOCOCCAL VACCINE POLYVALENT NOS [Suspect]
     Active Substance: PNEUMOCOCCAL VACCINE, POLYVALENT
     Dosage: DOSE NUMBER UNKNOWN, SINGLE
     Route: 065
  254. PNEUMOCOCCAL VACCINE POLYVALENT NOS [Suspect]
     Active Substance: PNEUMOCOCCAL VACCINE, POLYVALENT
     Dosage: DOSE NUMBER UNKNOWN, SINGLE
     Route: 065
  255. PNEUMOCOCCAL VACCINE POLYVALENT NOS [Suspect]
     Active Substance: PNEUMOCOCCAL VACCINE, POLYVALENT
     Dosage: DOSE NUMBER UNKNOWN, SINGLE
     Route: 065
  256. PNEUMOCOCCAL VACCINE POLYVALENT NOS [Suspect]
     Active Substance: PNEUMOCOCCAL VACCINE, POLYVALENT
     Dosage: DOSE NUMBER UNKNOWN, SINGLE
     Route: 030
  257. PNEUMOCOCCAL VACCINE POLYVALENT NOS [Suspect]
     Active Substance: PNEUMOCOCCAL VACCINE, POLYVALENT
     Dosage: DOSE NUMBER UNKNOWN, SINGLE
     Route: 030
  258. PNEUMOCOCCAL VACCINE POLYVALENT NOS [Suspect]
     Active Substance: PNEUMOCOCCAL VACCINE, POLYVALENT
     Dosage: DOSE NUMBER UNKNOWN, 0.5 ML
     Route: 030
  259. PNEUMOCOCCAL VACCINE POLYVALENT NOS [Suspect]
     Active Substance: PNEUMOCOCCAL VACCINE, POLYVALENT
     Dosage: DOSE NUMBER UNKNOWN, 0.5 ML
     Route: 030
  260. PNEUMOCOCCAL 13-VALENT CONJUGATE VACCINE [Suspect]
     Active Substance: PNEUMOCOCCAL 13-VALENT CONJUGATE VACCINE
     Indication: Immunisation
     Dosage: DOSE NUMBER UNKNOWN, 0.5 ML SINGLE
     Route: 030
  261. PNEUMOCOCCAL 13-VALENT CONJUGATE VACCINE [Suspect]
     Active Substance: PNEUMOCOCCAL 13-VALENT CONJUGATE VACCINE
     Dosage: DOSE NUMBER UNKNOWN, 0.5 ML SINGLE
     Route: 030
  262. PNEUMOCOCCAL 13-VALENT CONJUGATE VACCINE [Suspect]
     Active Substance: PNEUMOCOCCAL 13-VALENT CONJUGATE VACCINE
     Dosage: DOSE NUMBER UNKNOWN, 0.5 ML SINGLE
     Route: 030
  263. PNEUMOCOCCAL 13-VALENT CONJUGATE VACCINE [Suspect]
     Active Substance: PNEUMOCOCCAL 13-VALENT CONJUGATE VACCINE
     Dosage: DOSE NUMBER UNKNOWN, SINGLE
     Route: 030
  264. PNEUMOCOCCAL 13-VALENT CONJUGATE VACCINE [Suspect]
     Active Substance: PNEUMOCOCCAL 13-VALENT CONJUGATE VACCINE
     Dosage: DOSE NUMBER UNKNOWN, SINGLE
     Route: 030
  265. PNEUMOCOCCAL 13-VALENT CONJUGATE VACCINE [Suspect]
     Active Substance: PNEUMOCOCCAL 13-VALENT CONJUGATE VACCINE
     Dosage: DOSE NUMBER UNKNOWN, SINGLE
     Route: 030
  266. PNEUMOCOCCAL 13-VALENT CONJUGATE VACCINE [Suspect]
     Active Substance: PNEUMOCOCCAL 13-VALENT CONJUGATE VACCINE
     Dosage: DOSE NUMBER UNKNOWN, SINGLE
     Route: 030
  267. PNEUMOCOCCAL 13-VALENT CONJUGATE VACCINE [Suspect]
     Active Substance: PNEUMOCOCCAL 13-VALENT CONJUGATE VACCINE
     Dosage: DOSE NUMBER UNKNOWN, SINGLE
     Route: 065
  268. PNEUMOCOCCAL 13-VALENT CONJUGATE VACCINE [Suspect]
     Active Substance: PNEUMOCOCCAL 13-VALENT CONJUGATE VACCINE
     Dosage: DOSE NUMBER UNKNOWN, SINGLE
     Route: 065
  269. PNEUMOCOCCAL 13-VALENT CONJUGATE VACCINE [Suspect]
     Active Substance: PNEUMOCOCCAL 13-VALENT CONJUGATE VACCINE
     Dosage: DOSE NUMBER UNKNOWN, SINGLE
     Route: 065
  270. PNEUMOCOCCAL 13-VALENT CONJUGATE VACCINE [Suspect]
     Active Substance: PNEUMOCOCCAL 13-VALENT CONJUGATE VACCINE
     Dosage: DOSE NUMBER UNKNOWN, SINGLE
     Route: 065
  271. PNEUMOCOCCAL 13-VALENT CONJUGATE VACCINE [Suspect]
     Active Substance: PNEUMOCOCCAL 13-VALENT CONJUGATE VACCINE
     Dosage: DOSE NUMBER UNKNOWN, SINGLE
     Route: 065
  272. PREDNISONE [Suspect]
     Active Substance: PREDNISONE
     Indication: Asthma
     Dosage: 1 EVERY 1 DAYS
     Route: 048
  273. PREDNISONE [Suspect]
     Active Substance: PREDNISONE
     Dosage: 1.0 DOSAGE FORMS, 1 EVERY 1 DAYS
     Route: 048
  274. PREDNISONE [Suspect]
     Active Substance: PREDNISONE
     Dosage: 1.0 DOSAGE FORMS, 1 EVERY 1 DAYS
     Route: 048
  275. PREDNISONE [Suspect]
     Active Substance: PREDNISONE
     Dosage: 1 EVERY 1 DAYS
     Route: 048
  276. PREDNISONE [Suspect]
     Active Substance: PREDNISONE
     Dosage: UNK
     Route: 065
  277. PREDNISONE [Suspect]
     Active Substance: PREDNISONE
     Dosage: UNK
     Route: 048
  278. PREDNISONE [Suspect]
     Active Substance: PREDNISONE
     Dosage: 1.0 DOSAGE FORMS, 1 EVERY 12 HOURS
     Route: 048
  279. PREDNISONE [Suspect]
     Active Substance: PREDNISONE
     Dosage: UNK
     Route: 048
  280. PREDNISONE [Suspect]
     Active Substance: PREDNISONE
     Dosage: UNK
     Route: 048
  281. PREDNISONE [Suspect]
     Active Substance: PREDNISONE
     Dosage: UNK
     Route: 048
  282. PREDNISONE [Suspect]
     Active Substance: PREDNISONE
     Dosage: UNK
     Route: 048
  283. PREDNISONE [Suspect]
     Active Substance: PREDNISONE
     Dosage: UNK
     Route: 048
  284. PREDNISONE [Suspect]
     Active Substance: PREDNISONE
     Dosage: UNK
     Route: 065
  285. PREDNISONE [Suspect]
     Active Substance: PREDNISONE
     Dosage: UNK
     Route: 065
  286. PREDNISONE [Suspect]
     Active Substance: PREDNISONE
     Dosage: UNK
     Route: 065
  287. PREDNISONE [Suspect]
     Active Substance: PREDNISONE
     Dosage: UNK
     Route: 065
  288. PREDNISONE [Suspect]
     Active Substance: PREDNISONE
     Dosage: UNK
     Route: 065
  289. PREDNISONE [Suspect]
     Active Substance: PREDNISONE
     Dosage: UNK
     Route: 065
  290. PREDNISONE [Suspect]
     Active Substance: PREDNISONE
     Dosage: UNK
     Route: 065
  291. ALBUTEROL [Suspect]
     Active Substance: ALBUTEROL
     Dosage: 100.0 MILLIGRAM
     Route: 055
  292. ALBUTEROL [Suspect]
     Active Substance: ALBUTEROL
     Dosage: 100.0 MICROGRAM
     Route: 055
  293. ALBUTEROL [Suspect]
     Active Substance: ALBUTEROL
     Dosage: 100 MILLIGRAM; DOSAGE FORM: NOT SPECIFIED
     Route: 065
  294. ALBUTEROL [Suspect]
     Active Substance: ALBUTEROL
     Dosage: 100.0 MILLIGRAM
     Route: 065
  295. ALBUTEROL [Suspect]
     Active Substance: ALBUTEROL
     Dosage: 100.0 MILLIGRAM
     Route: 065
  296. ALBUTEROL [Suspect]
     Active Substance: ALBUTEROL
     Dosage: 100.0 MILLIGRAM
     Route: 065
  297. ALBUTEROL [Suspect]
     Active Substance: ALBUTEROL
     Dosage: 100.0 MILLIGRAM
     Route: 065
  298. ALBUTEROL [Suspect]
     Active Substance: ALBUTEROL
     Dosage: 100.0 MILLIGRAM
     Route: 065
  299. ALBUTEROL [Suspect]
     Active Substance: ALBUTEROL
     Dosage: 100.0 MILLIGRAM
     Route: 065
  300. ALBUTEROL [Suspect]
     Active Substance: ALBUTEROL
     Dosage: 100.0 MICROGRAM
     Route: 055
  301. ALBUTEROL [Suspect]
     Active Substance: ALBUTEROL
     Dosage: 100.0 MICROGRAM
     Route: 065
  302. ALBUTEROL [Suspect]
     Active Substance: ALBUTEROL
     Dosage: 100.0 MICROGRAM
     Route: 065
  303. ALBUTEROL [Suspect]
     Active Substance: ALBUTEROL
     Dosage: 100.0 MICROGRAM
     Route: 065
  304. ALBUTEROL [Suspect]
     Active Substance: ALBUTEROL
     Dosage: 100.0 MICROGRAM
     Route: 065
  305. ALBUTEROL [Suspect]
     Active Substance: ALBUTEROL
     Dosage: 100.0 MICROGRAM
     Route: 065
  306. ALBUTEROL [Suspect]
     Active Substance: ALBUTEROL
     Dosage: 100.0 MICROGRAM
     Route: 065
  307. ALBUTEROL [Suspect]
     Active Substance: ALBUTEROL
     Dosage: 100.0 MICROGRAM
     Route: 065
  308. ALBUTEROL [Suspect]
     Active Substance: ALBUTEROL
     Dosage: 100.0 MICROGRAM
     Route: 065
  309. ALBUTEROL [Suspect]
     Active Substance: ALBUTEROL
     Dosage: 100.0 MICROGRAM
     Route: 065
  310. ALBUTEROL [Suspect]
     Active Substance: ALBUTEROL
     Dosage: 100.0 MICROGRAM
     Route: 065
  311. ALBUTEROL [Suspect]
     Active Substance: ALBUTEROL
     Dosage: 100.0 MICROGRAM
     Route: 065
  312. ALBUTEROL [Suspect]
     Active Substance: ALBUTEROL
     Dosage: 100.0 MICROGRAM
     Route: 065
  313. ALBUTEROL [Suspect]
     Active Substance: ALBUTEROL
     Dosage: 100.0 MICROGRAM
     Route: 065
  314. ALBUTEROL [Suspect]
     Active Substance: ALBUTEROL
     Dosage: 100.0 MICROGRAM
     Route: 065
  315. ALBUTEROL [Suspect]
     Active Substance: ALBUTEROL
     Dosage: 100.0 MICROGRAM
     Route: 065
  316. ALBUTEROL [Suspect]
     Active Substance: ALBUTEROL
     Dosage: 100.0 MICROGRAM
     Route: 065
  317. ALBUTEROL [Suspect]
     Active Substance: ALBUTEROL
     Dosage: 100.0 MICROGRAM
     Route: 055
  318. ALBUTEROL [Suspect]
     Active Substance: ALBUTEROL
     Dosage: 100.0 MICROGRAM
     Route: 065
  319. ALBUTEROL [Suspect]
     Active Substance: ALBUTEROL
     Dosage: 100.0 MICROGRAM
     Route: 055
  320. ALBUTEROL [Suspect]
     Active Substance: ALBUTEROL
     Dosage: 100.0 MICROGRAM
     Route: 055
  321. ALBUTEROL [Suspect]
     Active Substance: ALBUTEROL
     Dosage: 100.0 MICROGRAM
     Route: 065
  322. ALBUTEROL [Suspect]
     Active Substance: ALBUTEROL
     Dosage: 100.0 MICROGRAM
     Route: 055
  323. ALBUTEROL [Suspect]
     Active Substance: ALBUTEROL
     Dosage: 100.0 MICROGRAM
     Route: 065
  324. ALBUTEROL [Suspect]
     Active Substance: ALBUTEROL
     Dosage: 100.0 MICROGRAM
     Route: 055
  325. ALBUTEROL [Suspect]
     Active Substance: ALBUTEROL
     Dosage: 100.0 MICROGRAM
     Route: 055
  326. ALBUTEROL [Suspect]
     Active Substance: ALBUTEROL
     Dosage: 100.0 MILLIGRAM
     Route: 055
  327. ALBUTEROL [Suspect]
     Active Substance: ALBUTEROL
     Dosage: 100.0 MILLIGRAM
     Route: 055
  328. ALBUTEROL [Suspect]
     Active Substance: ALBUTEROL
     Dosage: 100.0 MILLIGRAM
     Route: 055
  329. ALBUTEROL [Suspect]
     Active Substance: ALBUTEROL
     Dosage: 100.0 MILLIGRAM
     Route: 055
  330. ALBUTEROL [Suspect]
     Active Substance: ALBUTEROL
     Dosage: 100.0 MILLIGRAM
     Route: 065
  331. ALBUTEROL [Suspect]
     Active Substance: ALBUTEROL
     Dosage: 100.0 MILLIGRAM
     Route: 055
  332. ALBUTEROL [Suspect]
     Active Substance: ALBUTEROL
     Dosage: 100.0 MILLIGRAM
  333. ALBUTEROL [Suspect]
     Active Substance: ALBUTEROL
     Dosage: 100.0 MILLIGRAM
  334. ALBUTEROL [Suspect]
     Active Substance: ALBUTEROL
     Dosage: 100.0 MILLIGRAM
  335. ALBUTEROL [Suspect]
     Active Substance: ALBUTEROL
     Dosage: 100.0 MILLIGRAM
  336. ALBUTEROL [Suspect]
     Active Substance: ALBUTEROL
     Dosage: 100.0 MILLIGRAM
  337. ALBUTEROL [Suspect]
     Active Substance: ALBUTEROL
     Dosage: UNK
     Route: 065
  338. ALBUTEROL [Suspect]
     Active Substance: ALBUTEROL
     Dosage: UNK
     Route: 065
  339. ALBUTEROL [Suspect]
     Active Substance: ALBUTEROL
     Dosage: UNK
     Route: 065
  340. ALBUTEROL [Suspect]
     Active Substance: ALBUTEROL
     Dosage: UNK
     Route: 065
  341. OMALIZUMAB [Suspect]
     Active Substance: OMALIZUMAB
     Dosage: DOSAGE FORM: NOT SPECIFIED
     Route: 048
  342. OMALIZUMAB [Suspect]
     Active Substance: OMALIZUMAB
     Dosage: UNK
     Route: 065
  343. OMALIZUMAB [Suspect]
     Active Substance: OMALIZUMAB
     Dosage: UNK
     Route: 048
  344. OMALIZUMAB [Suspect]
     Active Substance: OMALIZUMAB
     Dosage: UNK
     Route: 048
  345. OMALIZUMAB [Suspect]
     Active Substance: OMALIZUMAB
     Dosage: UNK
     Route: 065
  346. OMALIZUMAB [Suspect]
     Active Substance: OMALIZUMAB
     Dosage: UNK
     Route: 065
  347. OMALIZUMAB [Suspect]
     Active Substance: OMALIZUMAB
     Dosage: UNK
     Route: 065
  348. OMALIZUMAB [Suspect]
     Active Substance: OMALIZUMAB
     Dosage: UNK
     Route: 065
  349. OMALIZUMAB [Suspect]
     Active Substance: OMALIZUMAB
     Dosage: UNK
     Route: 065
  350. OMALIZUMAB [Suspect]
     Active Substance: OMALIZUMAB
     Dosage: UNK
     Route: 065
  351. OMALIZUMAB [Suspect]
     Active Substance: OMALIZUMAB
     Dosage: UNK
     Route: 048
  352. OMALIZUMAB [Suspect]
     Active Substance: OMALIZUMAB
     Dosage: UNK
     Route: 048
  353. OMALIZUMAB [Suspect]
     Active Substance: OMALIZUMAB
     Dosage: UNK
     Route: 065
  354. OMALIZUMAB [Suspect]
     Active Substance: OMALIZUMAB
     Dosage: UNK
     Route: 048
  355. OMALIZUMAB [Suspect]
     Active Substance: OMALIZUMAB
     Dosage: UNK
     Route: 065
  356. OMALIZUMAB [Suspect]
     Active Substance: OMALIZUMAB
     Dosage: UNK
     Route: 065
  357. OMALIZUMAB [Suspect]
     Active Substance: OMALIZUMAB
     Dosage: UNK
     Route: 048
  358. OMALIZUMAB [Suspect]
     Active Substance: OMALIZUMAB
     Dosage: UNK
     Route: 048
  359. OMALIZUMAB [Suspect]
     Active Substance: OMALIZUMAB
     Dosage: UNK
     Route: 065
  360. OMALIZUMAB [Suspect]
     Active Substance: OMALIZUMAB
     Dosage: UNK
     Route: 065
  361. OMALIZUMAB [Suspect]
     Active Substance: OMALIZUMAB
     Dosage: UNK
     Route: 065
  362. OMALIZUMAB [Suspect]
     Active Substance: OMALIZUMAB
     Dosage: UNK
     Route: 065
  363. OMALIZUMAB [Suspect]
     Active Substance: OMALIZUMAB
     Dosage: UNK
     Route: 065
  364. OMALIZUMAB [Suspect]
     Active Substance: OMALIZUMAB
     Dosage: UNK
     Route: 048
  365. OMALIZUMAB [Suspect]
     Active Substance: OMALIZUMAB
     Dosage: UNK
     Route: 048
  366. ALBUTEROL SULFATE [Suspect]
     Active Substance: ALBUTEROL SULFATE
     Dosage: 100.0 MILLIGRAM (INHALATION)
     Route: 055
  367. ALBUTEROL SULFATE [Suspect]
     Active Substance: ALBUTEROL SULFATE
     Dosage: 100.0 MILLIGRAM
     Route: 065
  368. ALBUTEROL SULFATE [Suspect]
     Active Substance: ALBUTEROL SULFATE
     Dosage: 100.0 MILLIGRAM
     Route: 065
  369. UMECLIDINIUM [Suspect]
     Active Substance: UMECLIDINIUM
     Dosage: 1.0 GRAM
     Route: 065
  370. UMECLIDINIUM [Suspect]
     Active Substance: UMECLIDINIUM
     Dosage: 1.0 GRAM
     Route: 065
  371. UMECLIDINIUM [Suspect]
     Active Substance: UMECLIDINIUM
     Dosage: 1.0 GRAM
     Route: 065
  372. UMECLIDINIUM [Suspect]
     Active Substance: UMECLIDINIUM
     Dosage: 1.0 GRAM
     Route: 065
  373. UMECLIDINIUM [Suspect]
     Active Substance: UMECLIDINIUM
     Dosage: 1.0 GRAM
     Route: 065
  374. UMECLIDINIUM [Suspect]
     Active Substance: UMECLIDINIUM
     Dosage: 1.0 GRAM
     Route: 065
  375. UMECLIDINIUM [Suspect]
     Active Substance: UMECLIDINIUM
     Dosage: 1.0 GRAM
     Route: 065
  376. UMECLIDINIUM [Suspect]
     Active Substance: UMECLIDINIUM
     Dosage: 1.0 GRAM
     Route: 065
  377. UMECLIDINIUM [Suspect]
     Active Substance: UMECLIDINIUM
     Dosage: 1.0 DOSAGE FORMS, 1 EVERY 1 DAY
     Route: 065
  378. UMECLIDINIUM [Suspect]
     Active Substance: UMECLIDINIUM
     Dosage: 1.0 DOSAGE FORMS, 1 EVERY 1 DAY
     Route: 065
  379. UMECLIDINIUM [Suspect]
     Active Substance: UMECLIDINIUM
     Dosage: 1.0 DOSAGE FORMS, 1 EVERY 1 DAY
     Route: 065
  380. UMECLIDINIUM [Suspect]
     Active Substance: UMECLIDINIUM
     Dosage: 1.0 DOSAGE FORMS, 1 EVERY 1 DAY
     Route: 065
  381. UMECLIDINIUM [Suspect]
     Active Substance: UMECLIDINIUM
     Dosage: 1.0 DOSAGE FORMS
     Route: 065
  382. UMECLIDINIUM [Suspect]
     Active Substance: UMECLIDINIUM
     Dosage: 1.0 DOSAGE FORMS
     Route: 065
  383. UMECLIDINIUM [Suspect]
     Active Substance: UMECLIDINIUM
     Dosage: 1.0 DOSAGE FORMS
     Route: 065
  384. UMECLIDINIUM [Suspect]
     Active Substance: UMECLIDINIUM
     Dosage: 1.0 DOSAGE FORMS
     Route: 065
  385. UMECLIDINIUM [Suspect]
     Active Substance: UMECLIDINIUM
     Dosage: 1.0 DOSAGE FORMS
     Route: 065
  386. UMECLIDINIUM [Suspect]
     Active Substance: UMECLIDINIUM
     Dosage: 1.0 DOSAGE FORMS
     Route: 065
  387. UMECLIDINIUM [Suspect]
     Active Substance: UMECLIDINIUM
     Dosage: 1.0 DOSAGE FORMS
     Route: 065
  388. UMECLIDINIUM [Suspect]
     Active Substance: UMECLIDINIUM
     Dosage: 1.0 DOSAGE FORMS
     Route: 065
  389. UMECLIDINIUM [Suspect]
     Active Substance: UMECLIDINIUM
     Dosage: 1.0 DOSAGE FORMS
     Route: 065
  390. UMECLIDINIUM [Suspect]
     Active Substance: UMECLIDINIUM
     Dosage: 1.0 DOSAGE FORMS
     Route: 065
  391. UMECLIDINIUM [Suspect]
     Active Substance: UMECLIDINIUM
     Dosage: 1.0 DOSAGE FORMS
     Route: 065
  392. UMECLIDINIUM [Suspect]
     Active Substance: UMECLIDINIUM
     Dosage: 1.0 DOSAGE FORMS
     Route: 065
  393. UMECLIDINIUM [Suspect]
     Active Substance: UMECLIDINIUM
     Dosage: 1.0 DOSAGE FORMS
     Route: 065
  394. UMECLIDINIUM [Suspect]
     Active Substance: UMECLIDINIUM
     Dosage: 1.0 DOSAGE FORMS
     Route: 065
  395. UMECLIDINIUM [Suspect]
     Active Substance: UMECLIDINIUM
     Dosage: 1.0 DOSAGE FORMS
     Route: 065
  396. UMECLIDINIUM [Suspect]
     Active Substance: UMECLIDINIUM
     Dosage: 1.0 DOSAGE FORMS
     Route: 065
  397. UMECLIDINIUM [Suspect]
     Active Substance: UMECLIDINIUM
     Dosage: 1.0 DOSAGE FORMS
     Route: 065
  398. UMECLIDINIUM [Suspect]
     Active Substance: UMECLIDINIUM
     Dosage: UNK
     Route: 065
  399. UMECLIDINIUM [Suspect]
     Active Substance: UMECLIDINIUM
     Dosage: UNK
     Route: 065
  400. UMECLIDINIUM [Suspect]
     Active Substance: UMECLIDINIUM
     Dosage: UNK
     Route: 065
  401. UMECLIDINIUM [Suspect]
     Active Substance: UMECLIDINIUM
     Dosage: UNK
     Route: 065
  402. UMECLIDINIUM [Suspect]
     Active Substance: UMECLIDINIUM
     Dosage: UNK
     Route: 065
  403. UMECLIDINIUM [Suspect]
     Active Substance: UMECLIDINIUM
     Dosage: UNK
     Route: 065
  404. UMECLIDINIUM [Suspect]
     Active Substance: UMECLIDINIUM
     Dosage: UNK
     Route: 065
  405. UMECLIDINIUM [Suspect]
     Active Substance: UMECLIDINIUM
     Dosage: UNK
     Route: 065
  406. UMECLIDINIUM [Suspect]
     Active Substance: UMECLIDINIUM
     Dosage: UNK
     Route: 065
  407. UMECLIDINIUM [Suspect]
     Active Substance: UMECLIDINIUM
     Dosage: UNK
     Route: 065
  408. UMECLIDINIUM BROMIDE [Suspect]
     Active Substance: UMECLIDINIUM BROMIDE
     Dosage: 1 GRAM, 1 EVERY 1 DAYS
     Route: 065
  409. UMECLIDINIUM BROMIDE [Suspect]
     Active Substance: UMECLIDINIUM BROMIDE
     Dosage: 1.0 DOSAGE FORMS
     Route: 065
  410. UMECLIDINIUM BROMIDE [Suspect]
     Active Substance: UMECLIDINIUM BROMIDE
     Dosage: 1.0 DOSAGE FORMS
     Route: 065
  411. UMECLIDINIUM BROMIDE [Suspect]
     Active Substance: UMECLIDINIUM BROMIDE
     Dosage: 1.0 DOSAGE FORMS
     Route: 065
  412. UMECLIDINIUM BROMIDE [Suspect]
     Active Substance: UMECLIDINIUM BROMIDE
     Dosage: 1.0 DOSAGE FORMS
     Route: 065
  413. UMECLIDINIUM BROMIDE [Suspect]
     Active Substance: UMECLIDINIUM BROMIDE
     Dosage: 1.0 DOSAGE FORMS
     Route: 065
  414. UMECLIDINIUM BROMIDE [Suspect]
     Active Substance: UMECLIDINIUM BROMIDE
     Dosage: UNK
     Route: 065
  415. UMECLIDINIUM BROMIDE [Suspect]
     Active Substance: UMECLIDINIUM BROMIDE
     Dosage: 1.0 DOSAGE FORMS, 1 EVERY 1 DAYS
     Route: 065
  416. UMECLIDINIUM BROMIDE [Suspect]
     Active Substance: UMECLIDINIUM BROMIDE
     Dosage: 1.0 DOSAGE FORMS, 1 EVERY 1 DAYS
     Route: 065
  417. UMECLIDINIUM BROMIDE [Suspect]
     Active Substance: UMECLIDINIUM BROMIDE
     Dosage: 1.0 DOSAGE FORMS, 1 EVERY 1 DAYS
     Route: 065
  418. UMECLIDINIUM BROMIDE [Suspect]
     Active Substance: UMECLIDINIUM BROMIDE
     Dosage: 1.0 DOSAGE FORMS, 1 EVERY 1 DAYS
     Route: 065
  419. UMECLIDINIUM BROMIDE [Suspect]
     Active Substance: UMECLIDINIUM BROMIDE
     Dosage: 1.0 DOSAGE FORMS, 1 EVERY 1 DAYS
     Route: 065
  420. UMECLIDINIUM BROMIDE [Suspect]
     Active Substance: UMECLIDINIUM BROMIDE
     Dosage: 1.0 DOSAGE FORMS, 1 EVERY 1 DAYS
     Route: 065
  421. UMECLIDINIUM BROMIDE [Suspect]
     Active Substance: UMECLIDINIUM BROMIDE
     Dosage: 1.0 DOSAGE FORMS, 1 EVERY 1 DAYS
     Route: 065
  422. UMECLIDINIUM BROMIDE [Suspect]
     Active Substance: UMECLIDINIUM BROMIDE
     Dosage: 1.0 DOSAGE FORMS, 1 EVERY 1 DAYS
     Route: 065
  423. UMECLIDINIUM BROMIDE [Suspect]
     Active Substance: UMECLIDINIUM BROMIDE
     Dosage: 1.0 DOSAGE FORMS, 1 EVERY 1 DAYS
     Route: 065
  424. UMECLIDINIUM BROMIDE [Suspect]
     Active Substance: UMECLIDINIUM BROMIDE
     Dosage: 1.0 DOSAGE FORMS, 1 EVERY 1 DAYS
     Route: 065
  425. UMECLIDINIUM BROMIDE [Suspect]
     Active Substance: UMECLIDINIUM BROMIDE
     Dosage: 1.0 DOSAGE FORMS, 1 EVERY 1 DAYS
     Route: 065
  426. UMECLIDINIUM BROMIDE [Suspect]
     Active Substance: UMECLIDINIUM BROMIDE
     Dosage: 1.0 DOSAGE FORMS, 1 EVERY 1 DAYS
     Route: 065
  427. UMECLIDINIUM BROMIDE [Suspect]
     Active Substance: UMECLIDINIUM BROMIDE
     Dosage: 1.0 GRAM
     Route: 065
  428. UMECLIDINIUM BROMIDE [Suspect]
     Active Substance: UMECLIDINIUM BROMIDE
     Dosage: 1.0 GRAM
     Route: 065
  429. UMECLIDINIUM BROMIDE [Suspect]
     Active Substance: UMECLIDINIUM BROMIDE
     Dosage: 1.0 GRAM
     Route: 065
  430. UMECLIDINIUM BROMIDE [Suspect]
     Active Substance: UMECLIDINIUM BROMIDE
     Dosage: 1.0 GRAM
     Route: 065
  431. UMECLIDINIUM BROMIDE [Suspect]
     Active Substance: UMECLIDINIUM BROMIDE
     Dosage: 1.0 GRAM
     Route: 065
  432. UMECLIDINIUM BROMIDE [Suspect]
     Active Substance: UMECLIDINIUM BROMIDE
     Dosage: 1.0 GRAM
     Route: 065
  433. UMECLIDINIUM BROMIDE [Suspect]
     Active Substance: UMECLIDINIUM BROMIDE
     Dosage: 1.0 GRAM
     Route: 065
  434. UMECLIDINIUM BROMIDE [Suspect]
     Active Substance: UMECLIDINIUM BROMIDE
     Dosage: 1 GRAM, 1 EVERY 1 DAYS
     Route: 065
  435. UMECLIDINIUM BROMIDE [Suspect]
     Active Substance: UMECLIDINIUM BROMIDE
     Dosage: 1 GRAM, 1 EVERY 1 DAYS
     Route: 065
  436. UMECLIDINIUM BROMIDE [Suspect]
     Active Substance: UMECLIDINIUM BROMIDE
     Dosage: UNK
     Route: 065
  437. UMECLIDINIUM BROMIDE [Suspect]
     Active Substance: UMECLIDINIUM BROMIDE
     Dosage: UNK
     Route: 065
  438. UMECLIDINIUM BROMIDE [Suspect]
     Active Substance: UMECLIDINIUM BROMIDE
     Dosage: UNK
     Route: 065
  439. UMECLIDINIUM BROMIDE [Suspect]
     Active Substance: UMECLIDINIUM BROMIDE
     Dosage: UNK
     Route: 065
  440. UMECLIDINIUM BROMIDE [Suspect]
     Active Substance: UMECLIDINIUM BROMIDE
     Dosage: UNK
     Route: 065
  441. UMECLIDINIUM BROMIDE [Suspect]
     Active Substance: UMECLIDINIUM BROMIDE
     Dosage: UNK
     Route: 065
  442. UMECLIDINIUM BROMIDE [Suspect]
     Active Substance: UMECLIDINIUM BROMIDE
     Dosage: UNK
     Route: 065
  443. UMECLIDINIUM BROMIDE [Suspect]
     Active Substance: UMECLIDINIUM BROMIDE
     Dosage: UNK
     Route: 065
  444. UMECLIDINIUM BROMIDE [Suspect]
     Active Substance: UMECLIDINIUM BROMIDE
     Dosage: UNK
     Route: 065
  445. UMECLIDINIUM BROMIDE [Suspect]
     Active Substance: UMECLIDINIUM BROMIDE
     Dosage: UNK
     Route: 065
  446. UMECLIDINIUM BROMIDE [Suspect]
     Active Substance: UMECLIDINIUM BROMIDE
     Dosage: UNK
     Route: 065
  447. UMECLIDINIUM BROMIDE [Suspect]
     Active Substance: UMECLIDINIUM BROMIDE
     Dosage: UNK
     Route: 065
  448. UMECLIDINIUM BROMIDE [Suspect]
     Active Substance: UMECLIDINIUM BROMIDE
     Dosage: UNK
     Route: 065
  449. UMECLIDINIUM BROMIDE [Suspect]
     Active Substance: UMECLIDINIUM BROMIDE
     Dosage: UNK
     Route: 065
  450. UMECLIDINIUM BROMIDE [Suspect]
     Active Substance: UMECLIDINIUM BROMIDE
     Dosage: UNK
     Route: 065
  451. UMECLIDINIUM BROMIDE [Suspect]
     Active Substance: UMECLIDINIUM BROMIDE
     Dosage: UNK
     Route: 065
  452. UMECLIDINIUM BROMIDE [Suspect]
     Active Substance: UMECLIDINIUM BROMIDE
     Dosage: UNK
     Route: 065
  453. UMECLIDINIUM BROMIDE [Suspect]
     Active Substance: UMECLIDINIUM BROMIDE
     Dosage: UNK
     Route: 065
  454. UMECLIDINIUM BROMIDE [Suspect]
     Active Substance: UMECLIDINIUM BROMIDE
     Dosage: UNK
     Route: 065
  455. UMECLIDINIUM BROMIDE [Suspect]
     Active Substance: UMECLIDINIUM BROMIDE
     Dosage: UNK
     Route: 065
  456. UMECLIDINIUM BROMIDE [Suspect]
     Active Substance: UMECLIDINIUM BROMIDE
     Dosage: UNK
     Route: 065
  457. UMECLIDINIUM BROMIDE [Suspect]
     Active Substance: UMECLIDINIUM BROMIDE
     Dosage: UNK
     Route: 065
  458. UMECLIDINIUM BROMIDE\VILANTEROL TRIFENATATE [Suspect]
     Active Substance: UMECLIDINIUM BROMIDE\VILANTEROL TRIFENATATE
     Dosage: 1.0 DOSAGE FORMS; 1 EVERY 1 DAY
     Route: 065
  459. UMECLIDINIUM BROMIDE\VILANTEROL TRIFENATATE [Suspect]
     Active Substance: UMECLIDINIUM BROMIDE\VILANTEROL TRIFENATATE
     Dosage: 1 G
     Route: 065
  460. UMECLIDINIUM BROMIDE\VILANTEROL TRIFENATATE [Suspect]
     Active Substance: UMECLIDINIUM BROMIDE\VILANTEROL TRIFENATATE
     Dosage: 1 DF, 1X/DAY (INHALATION)
  461. UMECLIDINIUM BROMIDE\VILANTEROL TRIFENATATE [Suspect]
     Active Substance: UMECLIDINIUM BROMIDE\VILANTEROL TRIFENATATE
     Dosage: 1 DF
  462. UMECLIDINIUM BROMIDE\VILANTEROL TRIFENATATE [Suspect]
     Active Substance: UMECLIDINIUM BROMIDE\VILANTEROL TRIFENATATE
     Dosage: UNK
     Route: 065
  463. UMECLIDINIUM BROMIDE\VILANTEROL TRIFENATATE [Suspect]
     Active Substance: UMECLIDINIUM BROMIDE\VILANTEROL TRIFENATATE
     Dosage: 1 G, 1 EVERY 1 DAYS
     Route: 065
  464. UMECLIDINIUM BROMIDE\VILANTEROL TRIFENATATE [Suspect]
     Active Substance: UMECLIDINIUM BROMIDE\VILANTEROL TRIFENATATE
     Dosage: UNK
     Route: 065
  465. UMECLIDINIUM BROMIDE\VILANTEROL TRIFENATATE [Suspect]
     Active Substance: UMECLIDINIUM BROMIDE\VILANTEROL TRIFENATATE
     Dosage: UNK
  466. XOLAIR [Suspect]
     Active Substance: OMALIZUMAB
     Dosage: UNK
     Route: 065
  467. XOLAIR [Suspect]
     Active Substance: OMALIZUMAB
     Dosage: UNK
     Route: 048
  468. XOLAIR [Suspect]
     Active Substance: OMALIZUMAB
     Dosage: UNK
     Route: 065
  469. BUDESONIDE [Suspect]
     Active Substance: BUDESONIDE
     Dosage: UNK
     Route: 055
  470. BUDESONIDE [Suspect]
     Active Substance: BUDESONIDE
     Dosage: UNK
     Route: 055
  471. BUDESONIDE [Suspect]
     Active Substance: BUDESONIDE
     Dosage: UNK
     Route: 065
  472. BUDESONIDE [Suspect]
     Active Substance: BUDESONIDE
     Dosage: UNK
     Route: 055
  473. BUDESONIDE [Suspect]
     Active Substance: BUDESONIDE
     Dosage: UNK
     Route: 065
  474. BUDESONIDE [Suspect]
     Active Substance: BUDESONIDE
     Dosage: UNK
     Route: 055
  475. BUDESONIDE [Suspect]
     Active Substance: BUDESONIDE
     Dosage: UNK
     Route: 065
  476. BUDESONIDE [Suspect]
     Active Substance: BUDESONIDE
     Dosage: UNK
     Route: 065
  477. BUDESONIDE [Suspect]
     Active Substance: BUDESONIDE
     Dosage: UNK
     Route: 065
  478. BUDESONIDE [Suspect]
     Active Substance: BUDESONIDE
     Dosage: UNK
     Route: 065
  479. BUDESONIDE [Suspect]
     Active Substance: BUDESONIDE
     Dosage: UNK
     Route: 065
  480. BUDESONIDE [Suspect]
     Active Substance: BUDESONIDE
     Dosage: UNK
     Route: 065
  481. BUDESONIDE [Suspect]
     Active Substance: BUDESONIDE
     Dosage: UNK
     Route: 065
  482. BUDESONIDE [Suspect]
     Active Substance: BUDESONIDE
     Dosage: 2 EVERY 1 DAY
     Route: 055
  483. BUDESONIDE [Suspect]
     Active Substance: BUDESONIDE
     Dosage: UNK
     Route: 065
  484. BUDESONIDE [Suspect]
     Active Substance: BUDESONIDE
     Dosage: UNK
     Route: 065
  485. BUDESONIDE [Suspect]
     Active Substance: BUDESONIDE
     Dosage: UNK
     Route: 065
  486. BUDESONIDE [Suspect]
     Active Substance: BUDESONIDE
     Dosage: UNK
     Route: 065
  487. BUDESONIDE [Suspect]
     Active Substance: BUDESONIDE
     Dosage: UNK
     Route: 065
  488. BUDESONIDE [Suspect]
     Active Substance: BUDESONIDE
     Dosage: UNK
     Route: 065
  489. BUDESONIDE [Suspect]
     Active Substance: BUDESONIDE
     Dosage: UNK
     Route: 055
  490. BUDESONIDE [Suspect]
     Active Substance: BUDESONIDE
     Dosage: UNK
     Route: 065
  491. BUDESONIDE [Suspect]
     Active Substance: BUDESONIDE
     Dosage: UNK
     Route: 055
  492. BUDESONIDE [Suspect]
     Active Substance: BUDESONIDE
     Dosage: UNK
     Route: 065
  493. BUDESONIDE [Suspect]
     Active Substance: BUDESONIDE
     Dosage: UNK
     Route: 055
  494. BUDESONIDE [Suspect]
     Active Substance: BUDESONIDE
     Dosage: UNK
     Route: 065
  495. BUDESONIDE [Suspect]
     Active Substance: BUDESONIDE
     Dosage: UNK
     Route: 055
  496. BUDESONIDE [Suspect]
     Active Substance: BUDESONIDE
     Dosage: UNK
     Route: 065
  497. BUDESONIDE [Suspect]
     Active Substance: BUDESONIDE
     Dosage: UNK
     Route: 065
  498. BUDESONIDE [Suspect]
     Active Substance: BUDESONIDE
     Dosage: UNK
     Route: 055
  499. BUDESONIDE [Suspect]
     Active Substance: BUDESONIDE
     Dosage: UNK
     Route: 065
  500. BUDESONIDE [Suspect]
     Active Substance: BUDESONIDE
     Dosage: UNK
     Route: 065
  501. BUDESONIDE [Suspect]
     Active Substance: BUDESONIDE
     Dosage: UNK
     Route: 065
  502. BUDESONIDE [Suspect]
     Active Substance: BUDESONIDE
     Dosage: UNK
     Route: 065
  503. BUDESONIDE [Suspect]
     Active Substance: BUDESONIDE
     Dosage: UNK
     Route: 065
  504. BUDESONIDE [Suspect]
     Active Substance: BUDESONIDE
     Dosage: UNK
     Route: 065
  505. BUDESONIDE [Suspect]
     Active Substance: BUDESONIDE
     Dosage: UNK
     Route: 065
  506. BUDESONIDE [Suspect]
     Active Substance: BUDESONIDE
     Dosage: UNK
     Route: 065
  507. BUDESONIDE [Suspect]
     Active Substance: BUDESONIDE
     Dosage: UNK
     Route: 065
  508. ALBUTEROL [Suspect]
     Active Substance: ALBUTEROL
     Dosage: UNK
     Route: 065
  509. ALBUTEROL [Suspect]
     Active Substance: ALBUTEROL
     Dosage: UNK
     Route: 065
  510. ALBUTEROL [Suspect]
     Active Substance: ALBUTEROL
     Dosage: UNK
     Route: 065
  511. ALBUTEROL [Suspect]
     Active Substance: ALBUTEROL
     Dosage: UNK
     Route: 065
  512. UMECLIDINIUM BROMIDE [Suspect]
     Active Substance: UMECLIDINIUM BROMIDE
     Dosage: 1 DF
     Route: 065
  513. UMECLIDINIUM BROMIDE [Suspect]
     Active Substance: UMECLIDINIUM BROMIDE
     Dosage: UNK
     Route: 065
  514. UMECLIDINIUM BROMIDE [Suspect]
     Active Substance: UMECLIDINIUM BROMIDE
     Dosage: UNK
     Route: 065
  515. UMECLIDINIUM BROMIDE [Suspect]
     Active Substance: UMECLIDINIUM BROMIDE
     Dosage: UNK
     Route: 065
  516. UMECLIDINIUM BROMIDE [Suspect]
     Active Substance: UMECLIDINIUM BROMIDE
     Dosage: UNK
     Route: 065
  517. UMECLIDINIUM BROMIDE [Suspect]
     Active Substance: UMECLIDINIUM BROMIDE
     Dosage: 1 DF
     Route: 065
  518. UMECLIDINIUM BROMIDE [Suspect]
     Active Substance: UMECLIDINIUM BROMIDE
     Dosage: 1 DF
     Route: 065
  519. UMECLIDINIUM BROMIDE [Suspect]
     Active Substance: UMECLIDINIUM BROMIDE
     Dosage: 1 DF
     Route: 065
  520. UMECLIDINIUM BROMIDE [Suspect]
     Active Substance: UMECLIDINIUM BROMIDE
     Dosage: 1 DF
     Route: 065
  521. UMECLIDINIUM BROMIDE [Suspect]
     Active Substance: UMECLIDINIUM BROMIDE
     Dosage: 1 DF
     Route: 065
  522. UMECLIDINIUM BROMIDE [Suspect]
     Active Substance: UMECLIDINIUM BROMIDE
     Dosage: 1 DF
     Route: 065
  523. UMECLIDINIUM BROMIDE [Suspect]
     Active Substance: UMECLIDINIUM BROMIDE
     Dosage: 1 DF
     Route: 065
  524. UMECLIDINIUM BROMIDE [Suspect]
     Active Substance: UMECLIDINIUM BROMIDE
     Dosage: 1 DF
     Route: 065
  525. UMECLIDINIUM BROMIDE [Suspect]
     Active Substance: UMECLIDINIUM BROMIDE
     Dosage: 1 DF
     Route: 065
  526. UMECLIDINIUM BROMIDE [Suspect]
     Active Substance: UMECLIDINIUM BROMIDE
     Dosage: 1 DF
     Route: 065
  527. UMECLIDINIUM BROMIDE [Suspect]
     Active Substance: UMECLIDINIUM BROMIDE
     Dosage: 1 DF
     Route: 065
  528. UMECLIDINIUM BROMIDE [Suspect]
     Active Substance: UMECLIDINIUM BROMIDE
     Dosage: 1 DF
     Route: 065
  529. UMECLIDINIUM BROMIDE [Suspect]
     Active Substance: UMECLIDINIUM BROMIDE
     Dosage: 1 DF
     Route: 065
  530. UMECLIDINIUM BROMIDE [Suspect]
     Active Substance: UMECLIDINIUM BROMIDE
     Dosage: 1 DF
     Route: 065
  531. UMECLIDINIUM BROMIDE [Suspect]
     Active Substance: UMECLIDINIUM BROMIDE
     Dosage: 1 DF
     Route: 065
  532. UMECLIDINIUM BROMIDE [Suspect]
     Active Substance: UMECLIDINIUM BROMIDE
     Dosage: 1.0 DOSAGE FORMS, 1 EVERY 1 DAYS
     Route: 065
  533. UMECLIDINIUM BROMIDE [Suspect]
     Active Substance: UMECLIDINIUM BROMIDE
     Dosage: 1.0 DOSAGE FORMS, 1 EVERY 1 DAYS
     Route: 065
  534. UMECLIDINIUM BROMIDE [Suspect]
     Active Substance: UMECLIDINIUM BROMIDE
     Dosage: 1.0 DOSAGE FORMS, 1 EVERY 1 DAYS
     Route: 065
  535. UMECLIDINIUM BROMIDE [Suspect]
     Active Substance: UMECLIDINIUM BROMIDE
     Dosage: 1.0 GRAM
     Route: 065
  536. UMECLIDINIUM BROMIDE [Suspect]
     Active Substance: UMECLIDINIUM BROMIDE
     Dosage: 1.0 GRAM
     Route: 065
  537. UMECLIDINIUM BROMIDE [Suspect]
     Active Substance: UMECLIDINIUM BROMIDE
     Dosage: 1.0 GRAM
     Route: 065
  538. UMECLIDINIUM BROMIDE [Suspect]
     Active Substance: UMECLIDINIUM BROMIDE
     Dosage: 1.0 GRAM
     Route: 065
  539. UMECLIDINIUM BROMIDE [Suspect]
     Active Substance: UMECLIDINIUM BROMIDE
     Dosage: 1.0 GRAM
     Route: 065
  540. UMECLIDINIUM BROMIDE [Suspect]
     Active Substance: UMECLIDINIUM BROMIDE
     Dosage: 1.0 GRAM
     Route: 065
  541. UMECLIDINIUM BROMIDE [Suspect]
     Active Substance: UMECLIDINIUM BROMIDE
     Dosage: 1.0 GRAM
     Route: 065
  542. UMECLIDINIUM BROMIDE [Suspect]
     Active Substance: UMECLIDINIUM BROMIDE
     Dosage: 1.0 GRAM
     Route: 065
  543. UMECLIDINIUM BROMIDE [Suspect]
     Active Substance: UMECLIDINIUM BROMIDE
     Dosage: 1.0 GRAM
     Route: 065
  544. UMECLIDINIUM BROMIDE [Suspect]
     Active Substance: UMECLIDINIUM BROMIDE
     Dosage: 1.0 GRAM
     Route: 065
  545. UMECLIDINIUM BROMIDE [Suspect]
     Active Substance: UMECLIDINIUM BROMIDE
     Dosage: 1.0 GRAM, 1 EVERY 1 DAYS
     Route: 065
  546. UMECLIDINIUM BROMIDE\VILANTEROL TRIFENATATE [Concomitant]
     Active Substance: UMECLIDINIUM BROMIDE\VILANTEROL TRIFENATATE
     Dosage: 1 DF, 1X/DAY
     Route: 065
  547. UMECLIDINIUM BROMIDE\VILANTEROL TRIFENATATE [Concomitant]
     Active Substance: UMECLIDINIUM BROMIDE\VILANTEROL TRIFENATATE
     Dosage: 1 G
     Route: 065
  548. FORMOTEROL FUMARATE [Concomitant]
     Active Substance: FORMOTEROL FUMARATE
     Dosage: UNK
     Route: 065
  549. FORMOTEROL FUMARATE [Concomitant]
     Active Substance: FORMOTEROL FUMARATE
     Dosage: UNK
     Route: 065
  550. APIXABAN [Concomitant]
     Active Substance: APIXABAN
     Dosage: 1 DF
     Route: 065
  551. APIXABAN [Concomitant]
     Active Substance: APIXABAN
     Dosage: 1 DF
     Route: 065
  552. APIXABAN [Concomitant]
     Active Substance: APIXABAN
     Dosage: 2 DF, 1X/DAY
     Route: 065
  553. APIXABAN [Concomitant]
     Active Substance: APIXABAN
     Dosage: 1 DF, 2X/DAY
     Route: 065
  554. APIXABAN [Concomitant]
     Active Substance: APIXABAN
     Dosage: UNK
     Route: 065
  555. APIXABAN [Concomitant]
     Active Substance: APIXABAN
     Dosage: 1 DF, 2X/DAY
     Route: 065
  556. APIXABAN [Concomitant]
     Active Substance: APIXABAN
     Dosage: 1 DF
     Route: 065
  557. APIXABAN [Concomitant]
     Active Substance: APIXABAN
     Dosage: 1 DF, 2X/DAY
     Route: 065
  558. APIXABAN [Concomitant]
     Active Substance: APIXABAN
     Dosage: UNK
     Route: 065
  559. APIXABAN [Concomitant]
     Active Substance: APIXABAN
     Dosage: 1 DF
     Route: 065
  560. APIXABAN [Concomitant]
     Active Substance: APIXABAN
     Dosage: UNK
     Route: 065
  561. APIXABAN [Concomitant]
     Active Substance: APIXABAN
     Dosage: 1 DF
     Route: 065
  562. SPIRIVA [Concomitant]
     Active Substance: TIOTROPIUM BROMIDE MONOHYDRATE
     Dosage: UNK
     Route: 065
  563. SPIRIVA [Concomitant]
     Active Substance: TIOTROPIUM BROMIDE MONOHYDRATE
     Dosage: UNK
     Route: 065
  564. SPIRIVA [Concomitant]
     Active Substance: TIOTROPIUM BROMIDE MONOHYDRATE
     Dosage: UNK
     Route: 065
  565. SPIRIVA [Concomitant]
     Active Substance: TIOTROPIUM BROMIDE MONOHYDRATE
     Dosage: UNK
     Route: 065
  566. RACEPINEPHRINE HYDROCHLORIDE [Concomitant]
     Active Substance: RACEPINEPHRINE HYDROCHLORIDE
     Dosage: UNK
     Route: 065
  567. RACEPINEPHRINE HYDROCHLORIDE [Concomitant]
     Active Substance: RACEPINEPHRINE HYDROCHLORIDE
     Dosage: UNK
     Route: 065
  568. NUCALA [Concomitant]
     Active Substance: MEPOLIZUMAB
     Indication: Asthma
     Dosage: 100.0 MILLIGRAM
     Route: 058
  569. BUDESONIDE\FORMOTEROL FUMARATE [Concomitant]
     Active Substance: BUDESONIDE\FORMOTEROL FUMARATE
     Dosage: UNK
     Route: 065
  570. ANORO ELLIPTA [Concomitant]
     Active Substance: UMECLIDINIUM BROMIDE\VILANTEROL TRIFENATATE
     Dosage: 1 DF, 1X/DAY, POWDER FOR ORAL INHALATION
  571. LEVALBUTEROL [Concomitant]
     Active Substance: LEVALBUTEROL
     Dosage: 100 UG
  572. PNEUMOCOCCAL VACCINE POLYVALENT [Concomitant]
     Active Substance: PNEUMOCOCCAL VACCINE POLYVALENT
     Indication: Immunisation
     Dosage: DOSE NUMBER UNKNOWN, SINGLE (23 VALENT)
  573. EPINEPHRINE BITARTRATE [Concomitant]
     Active Substance: EPINEPHRINE BITARTRATE
     Indication: Anaphylactic reaction
     Dosage: UNK
  574. PNEUMOCOCCAL 7-VALENT CONJUGATE VACCINE (DIPHTHERIA CRM197 PROTEIN) [Concomitant]
     Active Substance: PNEUMOCOCCAL 7-VALENT CONJUGATE VACCINE (DIPHTHERIA CRM197 PROTEIN)
     Indication: Immunisation
     Dosage: DOSE NUMBER UNKNOWN, 0.5 ML SINGLE
     Route: 030

REACTIONS (17)
  - Therapeutic product effect incomplete [Not Recovered/Not Resolved]
  - Drug ineffective [Not Recovered/Not Resolved]
  - Erythema [Not Recovered/Not Resolved]
  - Pruritus [Not Recovered/Not Resolved]
  - Dyspnoea [Not Recovered/Not Resolved]
  - Asthma [Not Recovered/Not Resolved]
  - Bronchopulmonary aspergillosis allergic [Not Recovered/Not Resolved]
  - Chronic obstructive pulmonary disease [Not Recovered/Not Resolved]
  - Factor V Leiden mutation [Not Recovered/Not Resolved]
  - Loss of personal independence in daily activities [Not Recovered/Not Resolved]
  - Multiple allergies [Not Recovered/Not Resolved]
  - Hypertension [Not Recovered/Not Resolved]
  - Dry skin [Not Recovered/Not Resolved]
  - Coagulation factor deficiency [Not Recovered/Not Resolved]
  - Coagulation factor V level abnormal [Not Recovered/Not Resolved]
  - Acquired factor V deficiency [Not Recovered/Not Resolved]
  - Off label use [Unknown]
